FAERS Safety Report 8525319-4 (Version None)
Quarter: 2012Q3

REPORT INFORMATION
  Report Type: 
  Country: None (occurrence: None)
  Receive Date: 20120720
  Receipt Date: 20120712
  Transmission Date: 20120928
  Serious: Yes (Hospitalization)
  Sender: FDA-Public Use
  Company Number: BE-BAYER-2012-069270

PATIENT
  Age: 76 Year
  Sex: Male

DRUGS (2)
  1. NEXAVAR [Suspect]
     Indication: HEPATIC NEOPLASM MALIGNANT
     Dosage: DAILY DOSE 400 MG
  2. NEXAVAR [Suspect]
     Dosage: DAILY DOSE 800 MG
     Dates: end: 20120704

REACTIONS (4)
  - EATING DISORDER [None]
  - INSOMNIA [None]
  - BLISTER [None]
  - PAIN [None]
